FAERS Safety Report 4783103-1 (Version None)
Quarter: 2005Q3

REPORT INFORMATION
  Report Type: 
  Country: None (occurrence: None)
  Receive Date: 20050914
  Receipt Date: 20050621
  Transmission Date: 20060218
  Serious: Yes (Other)
  Sender: FDA-Public Use
  Company Number: 163-20785-05060323

PATIENT
  Age: 8 Year
  Sex: Male
  Weight: 23.6 kg

DRUGS (8)
  1. THALOMID [Suspect]
     Indication: NEUROBLASTOMA
     Dosage: 50-350MG, QHS, ORAL; SEE IMAGE
     Route: 048
     Dates: start: 20050502, end: 20050617
  2. THALOMID [Suspect]
     Indication: NEUROBLASTOMA
     Dosage: 50-350MG, QHS, ORAL; SEE IMAGE
     Route: 048
     Dates: start: 20050618, end: 20050627
  3. THALOMID [Suspect]
     Indication: NEUROBLASTOMA
     Dosage: 50-350MG, QHS, ORAL; SEE IMAGE
     Route: 048
     Dates: start: 20050628, end: 20050630
  4. THALOMID [Suspect]
     Indication: NEUROBLASTOMA
     Dosage: 50-350MG, QHS, ORAL; SEE IMAGE
     Route: 048
     Dates: start: 20050701, end: 20050702
  5. THALOMID [Suspect]
     Indication: NEUROBLASTOMA
     Dosage: 50-350MG, QHS, ORAL; SEE IMAGE
     Route: 048
     Dates: start: 20050703, end: 20050704
  6. TEMOZOLOMIDE (TEMOZOLOMIDE) [Suspect]
     Indication: NEUROBLASTOMA
     Dosage: 1256MG FOR FIRST 5 DAYS OF A 28 DAYS CYCLE WITH DOSE ADJUSTMENTS EVERY 5 DAYS, ORAL
     Route: 048
     Dates: start: 20050502
  7. CELEXA [Suspect]
     Indication: DEPRESSION
     Dosage: 50 MG, DAILY, ORAL
     Route: 048
     Dates: start: 20050513
  8. ZYRTEC [Concomitant]

REACTIONS (7)
  - DEPRESSION [None]
  - DYSPNOEA [None]
  - HYPERSENSITIVITY [None]
  - SUICIDAL IDEATION [None]
  - SUICIDE ATTEMPT [None]
  - URTICARIA [None]
  - WHEEZING [None]
